FAERS Safety Report 4816856-4 (Version None)
Quarter: 2005Q4

REPORT INFORMATION
  Report Type: 
  Country: None (occurrence: None)
  Receive Date: 20051101
  Receipt Date: 20051021
  Transmission Date: 20060501
  Serious: Yes (Other)
  Sender: FDA-Public Use
  Company Number: US-JNJFOC-20050603186

PATIENT
  Sex: Female
  Weight: 97.3 kg

DRUGS (4)
  1. REMICADE [Suspect]
     Route: 042
  2. REMICADE [Suspect]
     Indication: RHEUMATOID ARTHRITIS
     Route: 042
  3. AZULFIDINE [Concomitant]
  4. PLAQUENIL [Concomitant]

REACTIONS (1)
  - NON-HODGKIN'S LYMPHOMA [None]
